FAERS Safety Report 18349818 (Version 1)
Quarter: 2020Q4

REPORT INFORMATION
  Report Type: Spontaneous
  Country: US (occurrence: US)
  Receive Date: 20201006
  Receipt Date: 20201006
  Transmission Date: 20210114
  Serious: Yes (Death)
  Sender: FDA-Public Use
  Company Number: None

PATIENT
  Age: 64 Year
  Sex: Female

DRUGS (8)
  1. MULTI VITAMIN [Concomitant]
     Active Substance: VITAMINS
  2. ACETAMINOPHN [Concomitant]
  3. NYSTATIN. [Concomitant]
     Active Substance: NYSTATIN
  4. PROCHLORER [Concomitant]
  5. FASLODEX [Concomitant]
     Active Substance: FULVESTRANT
  6. CAPECITABINE. [Suspect]
     Active Substance: CAPECITABINE
     Indication: NEOPLASM MALIGNANT
     Dosage: ?
     Route: 048
     Dates: start: 20200916, end: 20200926
  7. AMOXICILLIN. [Concomitant]
     Active Substance: AMOXICILLIN
  8. LIDOCANINE [Concomitant]

REACTIONS (1)
  - Death [None]

NARRATIVE: CASE EVENT DATE: 20200926
